FAERS Safety Report 6347032-4 (Version None)
Quarter: 2009Q3

REPORT INFORMATION
  Report Type: 
  Country: None (occurrence: None)
  Receive Date: 20090909
  Receipt Date: 20090909
  Transmission Date: 20100115
  Serious: Yes (Hospitalization, Other)
  Sender: FDA-Public Use
  Company Number: None

PATIENT
  Age: 25 Year
  Sex: Male
  Weight: 86.1834 kg

DRUGS (1)
  1. CIPROFLOXACIN HCL [Suspect]
     Indication: PROSTATITIS
     Dosage: 500 MG 2 TIMES DAILY PO
     Route: 048
     Dates: start: 20090718, end: 20090803

REACTIONS (10)
  - ABDOMINAL PAIN [None]
  - ANXIETY [None]
  - DYSPNOEA [None]
  - HALLUCINATION [None]
  - HYPERTENSION [None]
  - INSOMNIA [None]
  - LABYRINTHITIS [None]
  - MANIA [None]
  - RESTLESSNESS [None]
  - URINARY RETENTION [None]
